FAERS Safety Report 4719086-X (Version None)
Quarter: 2005Q3

REPORT INFORMATION
  Report Type: 
  Country: None (occurrence: None)
  Receive Date: 20050719
  Receipt Date: 20050706
  Transmission Date: 20060218
  Serious: Yes (Other)
  Sender: FDA-Public Use
  Company Number: DE_050716378

PATIENT
  Age: 78 Year
  Sex: Female
  Weight: 69 kg

DRUGS (4)
  1. CYMBALTA [Suspect]
     Indication: DEPRESSION
     Dosage: 30 MG
     Dates: start: 20050602, end: 20060610
  2. ITROP (IPRATROPIUM BROMIDE) [Concomitant]
  3. DUROGESIC (FENTANYL/00174601/) [Concomitant]
  4. GLIBENCLAMID [Concomitant]

REACTIONS (4)
  - ACTIVITIES OF DAILY LIVING IMPAIRED [None]
  - APATHY [None]
  - FATIGUE [None]
  - SOMNOLENCE [None]
